FAERS Safety Report 7391281-3 (Version None)
Quarter: 2011Q2

REPORT INFORMATION
  Report Type: 
  Country: None (occurrence: None)
  Receive Date: 20110404
  Receipt Date: 20100722
  Transmission Date: 20111010
  Serious: No
  Sender: FDA-Public Use
  Company Number: US-PFIZER INC-2010092240

PATIENT
  Sex: Female
  Weight: 88.435 kg

DRUGS (3)
  1. ZOLOFT [Interacting]
     Dosage: 50 MG, UNK , 100MG TABLET INTO TWO TO HAVE 50MG
     Route: 048
     Dates: start: 20100703
  2. ZOLOFT [Suspect]
     Indication: ANXIETY
     Dosage: 100 MG, UNK
     Route: 048
     Dates: start: 20100701
  3. EXCEDRIN (MIGRAINE) [Interacting]
     Indication: HEADACHE
     Dosage: UNK
     Route: 048

REACTIONS (2)
  - NERVOUSNESS [None]
  - PARAESTHESIA [None]
